FAERS Safety Report 22210552 (Version 1)
Quarter: 2023Q2

REPORT INFORMATION
  Report Type: Spontaneous
  Country: BR (occurrence: BR)
  Receive Date: 20230414
  Receipt Date: 20230414
  Transmission Date: 20230722
  Serious: Yes (Other)
  Sender: FDA-Public Use
  Company Number: BR-BAXTER-2023BAX018326

PATIENT
  Sex: Female

DRUGS (1)
  1. IRON [Suspect]
     Active Substance: IRON
     Dosage: DOSE WAS NOT INFORMED AND AT A FREQUENCY OF ONCE A WEEK
     Route: 042

REACTIONS (7)
  - Burning sensation [Recovering/Resolving]
  - Eye oedema [Not Recovered/Not Resolved]
  - Lip oedema [Not Recovered/Not Resolved]
  - Pruritus [Recovering/Resolving]
  - Oedema peripheral [Not Recovered/Not Resolved]
  - Dyspnoea [Recovering/Resolving]
  - Exposure during pregnancy [Unknown]
